FAERS Safety Report 23663275 (Version 1)
Quarter: 2024Q1

REPORT INFORMATION
  Report Type: Spontaneous
  Country: US (occurrence: US)
  Receive Date: 20240322
  Receipt Date: 20240322
  Transmission Date: 20240409
  Serious: No
  Sender: FDA-Public Use
  Company Number: US-GSK-US2024034209

PATIENT
  Sex: Male

DRUGS (2)
  1. NUCALA [Suspect]
     Active Substance: MEPOLIZUMAB
     Indication: Asthma
     Dosage: 300 MG, Q4W , 3 AUTO-INJECTORS AT 100MG/ML EACH
     Route: 058
     Dates: start: 2021
  2. NUCALA [Suspect]
     Active Substance: MEPOLIZUMAB
     Indication: Eosinophilic granulomatosis with polyangiitis

REACTIONS (3)
  - Wrong technique in device usage process [Unknown]
  - Incorrect dose administered [Unknown]
  - Accidental exposure to product [Unknown]
